FAERS Safety Report 5635150-5 (Version None)
Quarter: 2008Q1

REPORT INFORMATION
  Report Type: 
  Country: None (occurrence: None)
  Receive Date: 20080222
  Receipt Date: 20080212
  Transmission Date: 20080703
  Serious: Yes (Other)
  Sender: FDA-Public Use
  Company Number: SG-PFIZER INC-2008013451

PATIENT
  Age: 52 Year
  Sex: Male

DRUGS (11)
  1. PHENYTOIN [Suspect]
     Indication: CONVULSION
     Route: 042
     Dates: start: 20071120, end: 20071126
  2. AUGMENTIN '250' [Suspect]
     Indication: INFECTION
     Route: 042
     Dates: start: 20071120, end: 20071127
  3. ASPIRIN [Concomitant]
     Indication: MYOCARDIAL ISCHAEMIA
     Route: 048
  4. ASPIRIN [Concomitant]
     Indication: PROPHYLAXIS
  5. ATENOLOL [Concomitant]
     Indication: HYPERTENSION
     Route: 048
  6. ATENOLOL [Concomitant]
     Indication: CEREBROVASCULAR ACCIDENT
  7. OMEPRAZOLE [Concomitant]
     Route: 048
  8. ACETAMINOPHEN [Concomitant]
     Indication: PAIN
     Route: 048
  9. ACETAMINOPHEN [Concomitant]
     Indication: PYREXIA
  10. PREDNISOLONE [Concomitant]
     Route: 048
     Dates: start: 20071121, end: 20071122
  11. SPAN-K [Concomitant]
     Indication: HYPOKALAEMIA
     Route: 048
     Dates: start: 20071123, end: 20071127

REACTIONS (1)
  - PUSTULAR PSORIASIS [None]
